FAERS Safety Report 9999690 (Version 1)
Quarter: 2014Q1

REPORT INFORMATION
  Report Type: Spontaneous
  Country: US (occurrence: US)
  Receive Date: 20140312
  Receipt Date: 20140312
  Transmission Date: 20141002
  Serious: No
  Sender: FDA-Public Use
  Company Number: US-B.I. PHARMACEUTICALS,INC./RIDGEFIELD-2014-BI-09525BP

PATIENT
  Age: 71 Year
  Sex: Male

DRUGS (2)
  1. MICARDIS [Suspect]
     Indication: HYPERTENSION
     Dosage: 40 MG
     Route: 048
     Dates: start: 2011, end: 20140301
  2. TALMISARTAN [Suspect]
     Indication: HYPERTENSION
     Route: 048
     Dates: start: 20140302, end: 20140303

REACTIONS (1)
  - Drug ineffective [Not Recovered/Not Resolved]
